FAERS Safety Report 22979554 (Version 8)
Quarter: 2024Q3

REPORT INFORMATION
  Report Type: Spontaneous
  Country: US (occurrence: US)
  Receive Date: 20230925
  Receipt Date: 20240816
  Transmission Date: 20241017
  Serious: No
  Sender: PFIZER
  Company Number: US-PFIZER INC-PV202300144568

PATIENT
  Age: 74 Year
  Sex: Female
  Weight: 97.506 kg

DRUGS (2)
  1. CIBINQO [Suspect]
     Active Substance: ABROCITINIB
     Indication: Eczema asteatotic
     Dosage: 100 MG, 1X/DAY
     Route: 048
     Dates: start: 202401
  2. CIBINQO [Suspect]
     Active Substance: ABROCITINIB
     Indication: Eczema
     Dosage: 200 MG, 1X/DAY
     Route: 048
     Dates: start: 2024

REACTIONS (3)
  - Therapeutic product effect decreased [Unknown]
  - Condition aggravated [Unknown]
  - Blister [Unknown]
